FAERS Safety Report 6786175-8 (Version None)
Quarter: 2010Q2

REPORT INFORMATION
  Report Type: 
  Country: None (occurrence: None)
  Receive Date: 20100622
  Receipt Date: 20100622
  Transmission Date: 20101027
  Serious: Yes (Other)
  Sender: FDA-Public Use
  Company Number: None

PATIENT
  Age: 59 Year
  Sex: Female
  Weight: 70.3075 kg

DRUGS (2)
  1. BUPROPION HCL [Suspect]
  2. NORTRIPTYLINE HCL [Suspect]

REACTIONS (30)
  - ANXIETY [None]
  - BACK PAIN [None]
  - BALANCE DISORDER [None]
  - BLOOD GLUCOSE INCREASED [None]
  - BLOOD PRESSURE INADEQUATELY CONTROLLED [None]
  - CYST [None]
  - DIABETES MELLITUS INADEQUATE CONTROL [None]
  - DISTURBANCE IN ATTENTION [None]
  - DIZZINESS [None]
  - DRY MOUTH [None]
  - DYSGEUSIA [None]
  - HEADACHE [None]
  - HYPERTENSION [None]
  - IMPAIRED WORK ABILITY [None]
  - INSOMNIA [None]
  - IRRITABILITY [None]
  - MYALGIA [None]
  - NAUSEA [None]
  - NECK PAIN [None]
  - NODULE [None]
  - OROPHARYNGEAL PAIN [None]
  - PANIC ATTACK [None]
  - PARAESTHESIA [None]
  - PHOBIA [None]
  - TINNITUS [None]
  - TREMOR [None]
  - UNEVALUABLE EVENT [None]
  - URINARY RETENTION [None]
  - URINARY TRACT INFECTION [None]
  - WHEEZING [None]
